FAERS Safety Report 4969538-2 (Version None)
Quarter: 2006Q1

REPORT INFORMATION
  Report Type: 
  Country: None (occurrence: None)
  Receive Date: 20060201
  Receipt Date: 20051224
  Transmission Date: 20060701
  Serious: No
  Sender: FDA-Public Use
  Company Number: 2005PV006189

PATIENT
  Age: 65 Year
  Sex: Female
  Weight: 73.4827 kg

DRUGS (3)
  1. BYETTA [Suspect]
     Indication: DIABETES MELLITUS NON-INSULIN-DEPENDENT
     Dosage: 5 MCG;BID;SC
     Route: 058
     Dates: start: 20051217
  2. METFORMIN [Concomitant]
  3. PRILOSEC [Concomitant]

REACTIONS (4)
  - GASTROOESOPHAGEAL REFLUX DISEASE [None]
  - NASOPHARYNGITIS [None]
  - NAUSEA [None]
  - PARANASAL SINUS HYPERSECRETION [None]
